FAERS Safety Report 21352071 (Version 2)
Quarter: 2022Q4

REPORT INFORMATION
  Report Type: Spontaneous
  Country: US (occurrence: None)
  Receive Date: 20220920
  Receipt Date: 20221108
  Transmission Date: 20230113
  Serious: No
  Sender: FDA-Public Use
  Company Number: 2022A311938

PATIENT
  Age: 23020 Day
  Sex: Female
  Weight: 111.6 kg

DRUGS (2)
  1. LOKELMA [Suspect]
     Active Substance: SODIUM ZIRCONIUM CYCLOSILICATE
     Indication: Blood potassium increased
     Route: 048
     Dates: start: 202012
  2. LOKELMA [Suspect]
     Active Substance: SODIUM ZIRCONIUM CYCLOSILICATE
     Indication: Blood potassium increased
     Route: 048
     Dates: start: 202201

REACTIONS (5)
  - Rectal haemorrhage [Unknown]
  - Constipation [Unknown]
  - Product dose omission issue [Not Recovered/Not Resolved]
  - Product packaging quantity issue [Unknown]
  - Device material issue [Unknown]

NARRATIVE: CASE EVENT DATE: 20220817
